FAERS Safety Report 8891342 (Version 1)
Quarter: 2012Q4

REPORT INFORMATION
  Report Type: Spontaneous
  Country: US (occurrence: None)
  Receive Date: 20121102
  Receipt Date: 20121102
  Transmission Date: 20130627
  Serious: Yes (Hospitalization, Other)
  Sender: FDA-Public Use
  Company Number: None

PATIENT
  Age: 34 Year
  Sex: Male

DRUGS (1)
  1. FENTANYL [Suspect]
     Dates: start: 20121031, end: 20121031

REACTIONS (6)
  - Somnolence [None]
  - Loss of consciousness [None]
  - Asthenia [None]
  - Disorientation [None]
  - Hyperhidrosis [None]
  - Product measured potency issue [None]
